FAERS Safety Report 8512788 (Version 3)
Quarter: 2013Q2

REPORT INFORMATION
  Report Type: Spontaneous
  Country: US (occurrence: US)
  Receive Date: 20120413
  Receipt Date: 20130612
  Transmission Date: 20140414
  Serious: Yes (Hospitalization, Other)
  Sender: FDA-Public Use
  Company Number: US-ASTRAZENECA-2011SE66980

PATIENT
  Age: 65 Year
  Sex: Female
  Weight: 66.7 kg

DRUGS (7)
  1. NEXIUM [Suspect]
     Indication: GASTROOESOPHAGEAL REFLUX DISEASE
     Route: 048
     Dates: start: 201112, end: 201212
  2. NEXIUM [Suspect]
     Indication: GASTROOESOPHAGEAL REFLUX DISEASE
     Route: 048
     Dates: start: 201305
  3. ZOCOR [Concomitant]
     Indication: BLOOD CHOLESTEROL INCREASED
     Dates: start: 20130514
  4. SUDAFED [Concomitant]
     Indication: MULTIPLE ALLERGIES
     Dates: start: 2011
  5. COLESIPOL/COLESTID [Concomitant]
     Indication: DIARRHOEA
     Dates: start: 2011
  6. PAMELOR [Concomitant]
     Indication: INSOMNIA
     Route: 048
     Dates: start: 2005
  7. ZIAC [Concomitant]
     Indication: BLOOD PRESSURE ABNORMAL
     Dosage: 10-6.25 MG DAILY
     Route: 048
     Dates: start: 2011

REACTIONS (17)
  - Road traffic accident [Recovered/Resolved]
  - Transient ischaemic attack [Unknown]
  - Foot fracture [Recovered/Resolved]
  - Adverse event [Unknown]
  - Fall [Unknown]
  - Breath holding [Unknown]
  - Aphagia [Unknown]
  - Loss of consciousness [Unknown]
  - Memory impairment [Unknown]
  - Drug dose omission [Unknown]
  - Chest pain [Recovered/Resolved]
  - Blood cholesterol increased [Not Recovered/Not Resolved]
  - Weight decreased [Unknown]
  - Intentional drug misuse [Unknown]
  - Back pain [Unknown]
  - Vomiting [Unknown]
  - Dizziness [Unknown]
